FAERS Safety Report 4587198-X (Version None)
Quarter: 2005Q1

REPORT INFORMATION
  Report Type: 
  Country: None (occurrence: None)
  Receive Date: 20050215
  Receipt Date: 20050204
  Transmission Date: 20050727
  Serious: Yes (Death)
  Sender: FDA-Public Use
  Company Number: USA-2005-0018733

PATIENT
  Age: 53 Year
  Sex: Female

DRUGS (2)
  1. OXYCONTIN [Suspect]
     Dosage: MG
  2. OXYCODONE HCL [Suspect]
     Dosage: MG

REACTIONS (1)
  - DEATH [None]
